FAERS Safety Report 4289985-4 (Version None)
Quarter: 2004Q1

REPORT INFORMATION
  Report Type: 
  Country: None (occurrence: None)
  Receive Date: 20040210
  Receipt Date: 20040107
  Transmission Date: 20041129
  Serious: Yes (Hospitalization)
  Sender: FDA-Public Use
  Company Number: WAES 0401USA00427

PATIENT
  Age: 74 Year
  Sex: Female

DRUGS (11)
  1. [THERAPY UNSPECIFIED] [Concomitant]
     Dates: end: 20031228
  2. CIPROFLOXACIN [Concomitant]
     Indication: INFECTION
     Dates: start: 20031201, end: 20031201
  3. PLAVIX [Concomitant]
     Dates: end: 20031228
  4. FLEXERIL [Concomitant]
     Route: 048
     Dates: end: 20031228
  5. DIGOXIN [Concomitant]
     Dates: end: 20031228
  6. ZETIA [Suspect]
     Indication: HYPERCHOLESTEROLAEMIA
     Route: 048
     Dates: start: 20031101, end: 20031228
  7. ROBAXIN [Concomitant]
     Dates: end: 20031228
  8. SINGULAIR [Concomitant]
     Route: 048
     Dates: end: 20031228
  9. NITROGLYCERIN [Concomitant]
     Dates: end: 20031228
  10. PREDNISONE [Concomitant]
     Indication: ASTHMA
     Dates: end: 20031228
  11. COUMADIN [Concomitant]
     Dates: start: 20031201, end: 20031201

REACTIONS (7)
  - CARDIOVASCULAR DISORDER [None]
  - CONFUSIONAL STATE [None]
  - HEPATIC FAILURE [None]
  - HYPOGLYCAEMIA [None]
  - INFECTION [None]
  - INTERNATIONAL NORMALISED RATIO INCREASED [None]
  - LETHARGY [None]
